FAERS Safety Report 6388974-3 (Version None)
Quarter: 2009Q4

REPORT INFORMATION
  Report Type: 
  Country: None (occurrence: None)
  Receive Date: 20091001
  Receipt Date: 20090922
  Transmission Date: 20100525
  Serious: Yes (Other)
  Sender: FDA-Public Use
  Company Number: ADR28152009

PATIENT
  Age: 73 Year
  Sex: Female

DRUGS (2)
  1. RAMIPRIL [Suspect]
     Indication: HYPERTENSION
     Dosage: 10 MG
     Dates: start: 20071027, end: 20080314
  2. BENDROFLUMETHIAZIDE (2.5MG) [Concomitant]

REACTIONS (4)
  - ALOPECIA [None]
  - COUGH [None]
  - PRURITUS [None]
  - VISUAL IMPAIRMENT [None]
